FAERS Safety Report 9045970 (Version 1)
Quarter: 2013Q1

REPORT INFORMATION
  Report Type: Spontaneous
  Country: US (occurrence: US)
  Receive Date: 20130201
  Receipt Date: 20130201
  Transmission Date: 20140127
  Serious: No
  Sender: FDA-Public Use
  Company Number: US-ABBOTT-12P-163-1019528-00

PATIENT
  Sex: Female
  Weight: 53.12 kg

DRUGS (2)
  1. HUMIRA [Suspect]
     Indication: COLITIS ULCERATIVE
     Dates: start: 20121015
  2. PREDNISONE [Concomitant]
     Indication: COLITIS ULCERATIVE
     Dosage: UNKNOWN
     Dates: start: 20121015

REACTIONS (4)
  - Pruritus generalised [Not Recovered/Not Resolved]
  - Pruritus [Not Recovered/Not Resolved]
  - Pruritus [Not Recovered/Not Resolved]
  - Colitis ulcerative [Recovered/Resolved]
